FAERS Safety Report 9596910 (Version 2)
Quarter: 2013Q4

REPORT INFORMATION
  Report Type: Spontaneous
  Country: DE (occurrence: DE)
  Receive Date: 20131004
  Receipt Date: 20131004
  Transmission Date: 20140711
  Serious: Yes (Hospitalization)
  Sender: FDA-Public Use
  Company Number: DE-ABBVIE-13X-062-1066712-00

PATIENT
  Age: 14 Year
  Sex: Male
  Weight: 46 kg

DRUGS (2)
  1. KLACID [Suspect]
     Indication: RESPIRATORY TRACT INFECTION
     Route: 048
     Dates: start: 20130314, end: 20130317
  2. COUGH SYRUP [Concomitant]
     Indication: PRODUCT USED FOR UNKNOWN INDICATION
     Route: 048
     Dates: start: 20130317, end: 20130317

REACTIONS (19)
  - Psychotic behaviour [Recovered/Resolved]
  - Acute psychosis [Recovered/Resolved]
  - Confusional state [Unknown]
  - Anxiety [Not Recovered/Not Resolved]
  - Fear [Not Recovered/Not Resolved]
  - Chest pain [Recovered/Resolved]
  - Hyperaesthesia [Unknown]
  - Insomnia [Unknown]
  - Anxiety [Unknown]
  - Feeling abnormal [Unknown]
  - General physical health deterioration [Unknown]
  - Hallucination [Unknown]
  - Sinusitis [Unknown]
  - Agitation [Not Recovered/Not Resolved]
  - Sinus polyp [Unknown]
  - Disorientation [Unknown]
  - Diplopia [Unknown]
  - Accommodation disorder [Unknown]
  - Binocular eye movement disorder [Unknown]
